FAERS Safety Report 7134549-8 (Version None)
Quarter: 2010Q4

REPORT INFORMATION
  Report Type: 
  Country: None (occurrence: None)
  Receive Date: 20101203
  Receipt Date: 20101116
  Transmission Date: 20110411
  Serious: Yes (Other)
  Sender: FDA-Public Use
  Company Number: US-SANOFI-AVENTIS-200217257US

PATIENT
  Age: 40 Year
  Sex: Female
  Weight: 57.3 kg

DRUGS (7)
  1. BENZAMYCIN [Suspect]
     Dosage: DOSE AS USED: UNK
     Dates: start: 19970101, end: 20020801
  2. BENZAMYCIN [Suspect]
     Dosage: DOSE AS USED: UNKNOWN
     Dates: end: 20100101
  3. BENZAMYCIN [Suspect]
     Dosage: DOSE AS USED: UNK
     Dates: start: 19970101, end: 20020801
  4. VITAMIN AND MINERAL PRENATAL SUPPLEMENT W/ FOLIC ACID CAP [Concomitant]
     Indication: VITAMIN SUPPLEMENTATION
     Dosage: DOSE AS USED: 1 TABLET
     Dates: start: 20010801, end: 20020601
  5. MULTI-VITAMINS [Concomitant]
  6. CITRACAL [Concomitant]
  7. FISH OIL [Concomitant]

REACTIONS (11)
  - ABORTION SPONTANEOUS [None]
  - DRUG EXPOSURE DURING PREGNANCY [None]
  - DRUG INEFFECTIVE [None]
  - EYE IRRITATION [None]
  - EYE PAIN [None]
  - EYE SWELLING [None]
  - EYELID INFECTION [None]
  - EYELID OEDEMA [None]
  - NASOPHARYNGITIS [None]
  - PRODUCT QUALITY ISSUE [None]
  - SINUS CONGESTION [None]
